FAERS Safety Report 19401802 (Version 2)
Quarter: 2021Q2

REPORT INFORMATION
  Report Type: Spontaneous
  Country: BG (occurrence: BG)
  Receive Date: 20210611
  Receipt Date: 20210612
  Transmission Date: 20210717
  Serious: Yes (Other)
  Sender: FDA-Public Use
  Company Number: BG-AMGEN-BGRSP2021086055

PATIENT
  Age: 70 Year
  Sex: Male

DRUGS (3)
  1. PAZOPANIB [Concomitant]
     Active Substance: PAZOPANIB
     Dosage: UNK
     Dates: start: 20191108
  2. SORAFENIB [Concomitant]
     Active Substance: SORAFENIB
     Dosage: SECOND LINE WITH 600
     Dates: start: 20201112
  3. ARANESP [Suspect]
     Active Substance: DARBEPOETIN ALFA
     Indication: PRODUCT USED FOR UNKNOWN INDICATION
     Dosage: UNK
     Route: 065
     Dates: start: 20200910

REACTIONS (3)
  - Pleural effusion [Unknown]
  - Anaemia [Unknown]
  - Renal cancer metastatic [Unknown]

NARRATIVE: CASE EVENT DATE: 20201111
